FAERS Safety Report 9458185 (Version 2)
Quarter: 2013Q3

REPORT INFORMATION
  Report Type: Spontaneous
  Country: JP (occurrence: JP)
  Receive Date: 20130814
  Receipt Date: 20130904
  Transmission Date: 20140515
  Serious: Yes (Hospitalization)
  Sender: FDA-Public Use
  Company Number: JP-ELI_LILLY_AND_COMPANY-JP201308002675

PATIENT
  Age: 77 Year
  Sex: Female
  Weight: 37 kg

DRUGS (7)
  1. CYMBALTA [Suspect]
     Indication: DEPRESSION
     Dosage: 120 MG, QD
     Route: 048
     Dates: start: 20130725, end: 20130731
  2. CYMBALTA [Suspect]
     Dosage: 40 MG, QD
     Route: 048
     Dates: start: 20130801, end: 20130804
  3. ALDACTONE /00006201/ [Suspect]
     Indication: HYPERTENSION
     Dosage: 25 MG, QD
     Route: 048
     Dates: end: 20130804
  4. ABILIFY [Concomitant]
     Indication: DEPRESSION
     Dosage: 3 MG, QD
     Route: 048
     Dates: start: 20130725
  5. WYPAX [Concomitant]
     Indication: DEPRESSION
     Dosage: 1.5 MG, TID
     Route: 048
     Dates: start: 20130725, end: 20130811
  6. NEUQUINON [Concomitant]
     Indication: CARDIAC FAILURE
     Dosage: 20 MG, BID
     Route: 048
  7. TENORMIN [Concomitant]
     Indication: HYPERTENSION
     Dosage: 25 MG, QD
     Route: 048

REACTIONS (2)
  - Inappropriate antidiuretic hormone secretion [Recovered/Resolved]
  - Constipation [Recovering/Resolving]
